FAERS Safety Report 8032926-4 (Version None)
Quarter: 2011Q4

REPORT INFORMATION
  Report Type: 
  Country: None (occurrence: None)
  Receive Date: 20111223
  Receipt Date: 20111219
  Transmission Date: 20120403
  Serious: Yes (Other)
  Sender: FDA-Public Use
  Company Number: US-1188724

PATIENT
  Age: 45 Year
  Sex: Male
  Weight: 105 kg

DRUGS (7)
  1. PATANASE [Suspect]
  2. ALLEGRA [Concomitant]
  3. PATANASE [Suspect]
     Indication: MULTIPLE ALLERGIES
     Dosage: 2 SPRAYS BID NASAL
     Route: 045
     Dates: start: 20110907, end: 20110907
  4. PATANASE [Suspect]
     Indication: MULTIPLE ALLERGIES
     Dosage: 2 SPRAYS BID NASAL
     Route: 045
     Dates: start: 20111012, end: 20111012
  5. LISINOPRIL [Concomitant]
  6. NASONEX [Concomitant]
  7. MELOXICAM [Concomitant]

REACTIONS (4)
  - URTICARIA [None]
  - ANAPHYLACTIC REACTION [None]
  - PRURITUS [None]
  - PHARYNGEAL OEDEMA [None]
